FAERS Safety Report 4835871-8 (Version None)
Quarter: 2005Q4

REPORT INFORMATION
  Report Type: 
  Country: None (occurrence: None)
  Receive Date: 20051123
  Receipt Date: 20051013
  Transmission Date: 20060501
  Serious: Yes (Disabling)
  Sender: FDA-Public Use
  Company Number: GB-AVENTIS-200519783GDDC

PATIENT
  Sex: Male

DRUGS (7)
  1. ARAVA [Suspect]
     Indication: ARTHROPATHY
     Route: 048
     Dates: start: 20051003, end: 20051010
  2. OMEPRAZOLE [Concomitant]
     Indication: GASTRIC DISORDER
     Dosage: DOSE: UNK
  3. OMEPRAZOLE [Concomitant]
     Indication: PROPHYLAXIS
     Dosage: DOSE: UNK
  4. OMEPRAZOLE [Concomitant]
     Indication: PSORIATIC ARTHROPATHY
     Dosage: DOSE: UNK
  5. IBUPROFEN [Concomitant]
     Dosage: DOSE: UNK
  6. DICLOFENAC [Concomitant]
     Dosage: DOSE: UNK
  7. METHOTREXATE [Concomitant]
     Dosage: DOSE: UNK
     Dates: end: 20050905

REACTIONS (3)
  - ERYTHEMA [None]
  - OEDEMA [None]
  - PSORIASIS [None]
